FAERS Safety Report 5275643-6 (Version None)
Quarter: 2007Q1

REPORT INFORMATION
  Report Type: 
  Country: None (occurrence: None)
  Receive Date: 20070326
  Receipt Date: 20070312
  Transmission Date: 20070707
  Serious: Yes (Other)
  Sender: FDA-Public Use
  Company Number: US-SANOFI-SYNTHELABO-A03200702078

PATIENT
  Sex: Female

DRUGS (4)
  1. ^ANTI-INFLAMMATORY MEDS^ [Concomitant]
     Indication: DRUG USE FOR UNKNOWN INDICATION
     Dosage: UNK
     Route: 065
  2. ASPIRIN [Concomitant]
     Indication: DRUG USE FOR UNKNOWN INDICATION
     Dosage: UNK
     Route: 065
  3. IBUPROFEN [Concomitant]
     Indication: DRUG USE FOR UNKNOWN INDICATION
     Dosage: UNK
     Route: 065
  4. AMBIEN [Suspect]
     Indication: INSOMNIA
     Dosage: UNK
     Route: 048
     Dates: start: 20040701, end: 20050104

REACTIONS (15)
  - AMNESIA [None]
  - CONFUSIONAL STATE [None]
  - CONTUSION [None]
  - DIZZINESS [None]
  - FALL [None]
  - LOSS OF CONSCIOUSNESS [None]
  - NERVE INJURY [None]
  - PAIN IN EXTREMITY [None]
  - RETINAL DETACHMENT [None]
  - RIB FRACTURE [None]
  - ROAD TRAFFIC ACCIDENT [None]
  - SLEEP WALKING [None]
  - SYNCOPE [None]
  - VESTIBULAR DISORDER [None]
  - WRIST FRACTURE [None]
